FAERS Safety Report 8100160-5 (Version None)
Quarter: 2012Q1

REPORT INFORMATION
  Report Type: 
  Country: None (occurrence: None)
  Receive Date: 20120129
  Receipt Date: 20111101
  Transmission Date: 20120608
  Serious: No
  Sender: FDA-Public Use
  Company Number: US-ABBOTT-11P-163-0845014-00

PATIENT
  Age: 46 Year
  Sex: Male

DRUGS (11)
  1. TOPAMAX [Concomitant]
     Indication: MIGRAINE
  2. TRAZODONE HCL [Concomitant]
     Indication: INSOMNIA
     Dosage: ONCE DAILY AT BEDTIME
  3. MELOXICAM [Concomitant]
     Indication: ARTHRALGIA
  4. OXYCONTIN [Concomitant]
     Indication: PAIN
  5. OXYCODONE HCL AND ACETAMINOPHEN [Concomitant]
     Indication: PAIN
     Dosage: 10/325, 1 IN MORNING AND 1 IN AFTERNOON
  6. ZOMIG [Concomitant]
     Indication: MIGRAINE
  7. OXYCODONE HCL AND ACETAMINOPHEN [Concomitant]
     Dosage: AND UP TO EVERY FOUR HOURS AS NEEDED
  8. IMITREX [Concomitant]
     Indication: MIGRAINE
  9. HUMIRA [Suspect]
     Indication: CROHN'S DISEASE
     Dosage: WEEK ONE
     Dates: start: 20110808
  10. CYMBALTA [Concomitant]
     Indication: FIBROMYALGIA
  11. CYMBALTA [Concomitant]
     Indication: DEPRESSION

REACTIONS (7)
  - ERYTHEMA [None]
  - RASH [None]
  - C-REACTIVE PROTEIN INCREASED [None]
  - INJECTION SITE DISCOMFORT [None]
  - INJECTION SITE PAIN [None]
  - DRY SKIN [None]
  - CROHN'S DISEASE [None]
